APPROVED DRUG PRODUCT: GLYCOPYRROLATE
Active Ingredient: GLYCOPYRROLATE
Strength: 0.2MG/ML
Dosage Form/Route: INJECTABLE;INJECTION
Application: A213655 | Product #001
Applicant: LUPIN LTD
Approved: Feb 7, 2023 | RLD: No | RS: No | Type: DISCN